FAERS Safety Report 8121535-4 (Version None)
Quarter: 2012Q1

REPORT INFORMATION
  Report Type: 
  Country: None (occurrence: None)
  Receive Date: 20120208
  Receipt Date: 20120207
  Transmission Date: 20120608
  Serious: Yes (Other)
  Sender: FDA-Public Use
  Company Number: IT-BAYER-2012-012400

PATIENT
  Age: 82 Year
  Sex: Female

DRUGS (3)
  1. ACECLOFENAC [Suspect]
     Indication: OSTEOARTHRITIS
     Dosage: DAILY DOSE 200 MG
     Route: 048
     Dates: start: 20110131, end: 20110323
  2. ASPIRIN [Suspect]
     Indication: SPINAL COLUMN STENOSIS
     Dosage: 100 MG, QD
     Route: 048
     Dates: start: 20110113
  3. KADIUR [Concomitant]
     Dosage: 55 MG, UNK
     Route: 048
     Dates: start: 20110323

REACTIONS (1)
  - ANAEMIA [None]
